FAERS Safety Report 10189988 (Version 3)
Quarter: 2014Q2

REPORT INFORMATION
  Report Type: Spontaneous
  Country: BR (occurrence: BR)
  Receive Date: 20140522
  Receipt Date: 20140528
  Transmission Date: 20141212
  Serious: Yes (Other)
  Sender: FDA-Public Use
  Company Number: BR-PFIZER INC-2014137190

PATIENT
  Age: 64 Year
  Sex: Female

DRUGS (3)
  1. CELEBRA [Suspect]
     Indication: MUSCULOSKELETAL PAIN
     Dosage: STRENGTH 200 MG, TOOK 20 CAPSULES
     Route: 048
     Dates: end: 20140515
  2. CELEBRA [Suspect]
     Indication: TENDONITIS
  3. MICARDIS [Concomitant]
     Dosage: 40 MG, UNK

REACTIONS (3)
  - Dysentery [Unknown]
  - Circumstance or information capable of leading to medication error [Recovered/Resolved]
  - Drug ineffective [Unknown]
